FAERS Safety Report 9277700 (Version 3)
Quarter: 2013Q2

REPORT INFORMATION
  Report Type: Report from Study
  Country: AU (occurrence: AU)
  Receive Date: 20130508
  Receipt Date: 20130520
  Transmission Date: 20140414
  Serious: Yes (Other)
  Sender: FDA-Public Use
  Company Number: PHHY2013AU044275

PATIENT
  Age: 63 Year
  Sex: Female

DRUGS (11)
  1. ACLASTA [Suspect]
     Indication: OSTEOPOROTIC FRACTURE
     Dosage: 5 MG, UNK
     Route: 042
     Dates: start: 20110315
  2. ACLASTA [Suspect]
     Dosage: 5 MG, UNK
     Route: 042
     Dates: start: 20120504
  3. CELEBREX [Concomitant]
     Indication: ARTHRALGIA
     Dosage: 1 DF, PRN
     Dates: start: 20130116
  4. MICARDIS [Concomitant]
     Indication: HYPERTENSION
     Dosage: 1 DF, QD
     Dates: start: 20121024
  5. NEO B12 [Concomitant]
     Indication: VITAMIN B12 DEFICIENCY
     Dosage: 1 DF, EVERY 3 MONTHS
     Dates: start: 20130227
  6. OSTELIN VITAMIN D + CALCIUM [Concomitant]
     Indication: VITAMIN D DEFICIENCY
     Dosage: 1 DF, QD
     Dates: start: 20090908
  7. OSTELIN VITAMIN D [Concomitant]
     Indication: VITAMIN D DEFICIENCY
     Dosage: 1 DF, QD
     Dates: start: 20120213
  8. PANADEINE FORTE [Concomitant]
     Indication: BACK PAIN
     Dosage: 2 DF, PRN AT NIGHT
     Dates: start: 20130116
  9. PANADEINE FORTE [Concomitant]
     Indication: MUSCULOSKELETAL PAIN
  10. PANADOL OSTEO [Concomitant]
     Indication: ARTHRALGIA
     Dosage: 2 DF, TID PRN
     Dates: start: 20120909
  11. THIAMINE HYDROCHLORIDE [Concomitant]
     Indication: ALCOHOLISM
     Dosage: 1 DF, QD

REACTIONS (7)
  - Liver injury [Unknown]
  - Dupuytren^s contracture [Unknown]
  - Hepatic cirrhosis [Unknown]
  - Hepatic steatosis [Unknown]
  - Haemangioma [Unknown]
  - Portal hypertension [Unknown]
  - Sciatica [Unknown]
